FAERS Safety Report 6126726-X (Version None)
Quarter: 2009Q1

REPORT INFORMATION
  Report Type: 
  Country: None (occurrence: None)
  Receive Date: 20090320
  Receipt Date: 20080408
  Transmission Date: 20090719
  Serious: No
  Sender: FDA-Public Use
  Company Number: US-ABBOTT-08P-163-0446316-00

PATIENT
  Sex: Female
  Weight: 130.3 kg

DRUGS (9)
  1. ERYTHROMYCIN [Suspect]
     Indication: DRUG USE FOR UNKNOWN INDICATION
  2. METHOTREXATE [Concomitant]
     Indication: PSORIASIS
     Route: 048
  3. METHOTREXATE [Concomitant]
     Indication: ARTHRALGIA
  4. HUMALIN R INSULIN [Concomitant]
     Indication: DIABETES MELLITUS
     Dosage: 33 U IN AM AND 16 U IN PM
     Route: 058
  5. LANTUS [Concomitant]
     Indication: DIABETES MELLITUS
     Dosage: 34 U IN EVENING AND 10 U IN AM
     Route: 058
  6. LISINOPRIL [Concomitant]
     Indication: HYPERTENSION
     Route: 048
  7. METOPROLOL SUCCINATE [Concomitant]
     Indication: HYPERTENSION
     Route: 048
  8. NORTRIPTYLINE HCL [Concomitant]
     Indication: NEURALGIA
     Dosage: 34 U IN EVENING AND 10 U IN AM
     Route: 048
  9. DULOXETINE HYDROCHLORIDE [Concomitant]
     Indication: DEPRESSION
     Dosage: 60MG AT BEDTIME
     Route: 048

REACTIONS (1)
  - PLEURAL EFFUSION [None]
